FAERS Safety Report 8352137-2 (Version None)
Quarter: 2012Q2

REPORT INFORMATION
  Report Type: 
  Country: None (occurrence: None)
  Receive Date: 20120511
  Receipt Date: 20120502
  Transmission Date: 20120825
  Serious: Yes (Other)
  Sender: FDA-Public Use
  Company Number: CA-JNJFOC-20120503731

PATIENT
  Sex: Female
  Weight: 101.4 kg

DRUGS (1)
  1. REMICADE [Suspect]
     Indication: PSORIASIS
     Dosage: START DATE APPROXIMATELY 2006
     Route: 042

REACTIONS (2)
  - TRISMUS [None]
  - SINUSITIS [None]
